FAERS Safety Report 8874431 (Version 1)
Quarter: 2012Q4

REPORT INFORMATION
  Report Type: 
  Country: US (occurrence: US)
  Receive Date: 20121023
  Receipt Date: 20121023
  Transmission Date: 20130627
  Serious: No
  Sender: FDA-Public Use
  Company Number: US-BAYER-2012-111167

PATIENT
  Age: 30 Year
  Sex: Female

DRUGS (1)
  1. ULTRAVIST [Suspect]
     Indication: COMPUTERISED TOMOGRAM
     Dosage: 100 mL, once
     Route: 042
     Dates: start: 20120926

REACTIONS (7)
  - Pruritus [Recovered/Resolved]
  - Pharyngeal oedema [Recovered/Resolved]
  - Pharyngeal hypoaesthesia [Recovered/Resolved]
  - Auricular swelling [Recovered/Resolved]
  - Lip swelling [Recovered/Resolved]
  - Rash erythematous [Recovered/Resolved]
  - Hypoaesthesia [Recovered/Resolved]
